FAERS Safety Report 19710745 (Version 1)
Quarter: 2021Q3

REPORT INFORMATION
  Report Type: Spontaneous
  Country: CA (occurrence: CA)
  Receive Date: 20210816
  Receipt Date: 20210816
  Transmission Date: 20211014
  Serious: Yes (Life-Threatening)
  Sender: FDA-Public Use
  Company Number: CA-ASTRAZENECA-2021A676287

PATIENT
  Sex: Male

DRUGS (12)
  1. FORXIGA [Suspect]
     Active Substance: DAPAGLIFLOZIN
     Dosage: UNKNOWN
     Route: 048
  2. CHLORHEXIDINE [Concomitant]
     Active Substance: CHLORHEXIDINE
  3. ROSUVATSATIN [Concomitant]
  4. MAGNESIUM HYDROXIDE. [Concomitant]
     Active Substance: MAGNESIUM HYDROXIDE
  5. ACETAMINOPHEN. [Concomitant]
     Active Substance: ACETAMINOPHEN
  6. HYDROMORPHONE [Concomitant]
     Active Substance: HYDROMORPHONE
  7. PROPOFOL. [Concomitant]
     Active Substance: PROPOFOL
  8. ASA [Concomitant]
     Active Substance: ASPIRIN
  9. MAGNESIUM SULPHATE [Concomitant]
     Active Substance: MAGNESIUM SULFATE
  10. NOREPINEPHRINE. [Concomitant]
     Active Substance: NOREPINEPHRINE
  11. METOPROLOL. [Concomitant]
     Active Substance: METOPROLOL
  12. SODIUM BICARBONATE. [Concomitant]
     Active Substance: SODIUM BICARBONATE

REACTIONS (2)
  - Euglycaemic diabetic ketoacidosis [Unknown]
  - Cardiovascular disorder [Unknown]
